FAERS Safety Report 18875588 (Version 2)
Quarter: 2021Q1

REPORT INFORMATION
  Report Type: Spontaneous
  Country: SE (occurrence: SE)
  Receive Date: 20210211
  Receipt Date: 20210219
  Transmission Date: 20210420
  Serious: Yes (Hospitalization, Other)
  Sender: FDA-Public Use
  Company Number: SE-AKCEA THERAPEUTICS-2021IS001080

PATIENT
  Age: 76 Year
  Sex: Male

DRUGS (2)
  1. TEGSEDI [Suspect]
     Active Substance: INOTERSEN SODIUM
     Indication: HEREDITARY NEUROPATHIC AMYLOIDOSIS
     Route: 058
     Dates: start: 20200305
  2. ISSD (INTEGRATED SYRINGE SAFETY DEVICE) [Suspect]
     Active Substance: DEVICE

REACTIONS (6)
  - Pyrexia [Unknown]
  - Erysipelas [Unknown]
  - Pneumonia [Unknown]
  - Peripheral swelling [Unknown]
  - Chills [Unknown]
  - Cardiac failure [Unknown]

NARRATIVE: CASE EVENT DATE: 202101
